FAERS Safety Report 5478996-9 (Version None)
Quarter: 2007Q4

REPORT INFORMATION
  Report Type: 
  Country: None (occurrence: None)
  Receive Date: 20071006
  Receipt Date: 20070927
  Transmission Date: 20080405
  Serious: Yes (Other)
  Sender: FDA-Public Use
  Company Number: JP-PFIZER INC-2007078787

PATIENT
  Age: 36 Year
  Sex: Female

DRUGS (1)
  1. HYDROCORTISONE SODIUM SUCCINATE [Suspect]
     Indication: ASTHMA
     Dosage: DAILY DOSE:300MG
     Route: 042

REACTIONS (1)
  - ASTHMA [None]
